FAERS Safety Report 7542802-9 (Version None)
Quarter: 2011Q2

REPORT INFORMATION
  Report Type: 
  Country: None (occurrence: None)
  Receive Date: 20110613
  Receipt Date: 20110602
  Transmission Date: 20111010
  Serious: Yes (Hospitalization, Other)
  Sender: FDA-Public Use
  Company Number: US-ASTRAZENECA-2011SE33974

PATIENT
  Age: 51 Year
  Sex: Male
  Weight: 90.7 kg

DRUGS (6)
  1. WELLBUTRIN XL [Concomitant]
  2. SEROQUEL XR [Suspect]
     Indication: BIPOLAR DISORDER
     Route: 048
  3. HYDROCHLOROTHIAZIDE [Concomitant]
  4. CYMBALTA [Concomitant]
  5. LAMOTRIGINE [Concomitant]
  6. DOXAZOSIN MESYLATE [Concomitant]

REACTIONS (5)
  - DRUG DOSE OMISSION [None]
  - HOSPITALISATION [None]
  - SLEEP DISORDER [None]
  - EATING DISORDER [None]
  - SUICIDAL IDEATION [None]
